FAERS Safety Report 19112068 (Version 1)
Quarter: 2021Q2

REPORT INFORMATION
  Report Type: Spontaneous
  Country: US (occurrence: US)
  Receive Date: 20210409
  Receipt Date: 20210409
  Transmission Date: 20210717
  Serious: Yes (Other)
  Sender: FDA-Public Use
  Company Number: US-GLAXOSMITHKLINE-US2021GSK077784

PATIENT
  Sex: Female

DRUGS (13)
  1. ZANTAC [Suspect]
     Active Substance: RANITIDINE HYDROCHLORIDE
     Dosage: 300 MG, QD
     Route: 065
     Dates: start: 199701, end: 200408
  2. RANITIDINE. [Suspect]
     Active Substance: RANITIDINE
     Dosage: 300 MG, 2004?2015 AS NEEDED THEN DAILY 2X DAY
     Route: 065
     Dates: start: 200401, end: 201901
  3. ZANTAC [Suspect]
     Active Substance: RANITIDINE HYDROCHLORIDE
     Indication: GASTROOESOPHAGEAL REFLUX DISEASE
     Dosage: 150 MG BOTH
     Route: 065
     Dates: start: 199701, end: 200408
  4. ZANTAC [Suspect]
     Active Substance: RANITIDINE HYDROCHLORIDE
     Dosage: 300 MG, QD
     Route: 065
     Dates: start: 199701, end: 200408
  5. RANITIDINE. [Suspect]
     Active Substance: RANITIDINE
     Dosage: 300 MG, 2004?2015 AS NEEDED THEN DAILY 2X DAY
     Route: 065
     Dates: start: 200401, end: 201901
  6. ZANTAC [Suspect]
     Active Substance: RANITIDINE HYDROCHLORIDE
     Indication: GASTROOESOPHAGEAL REFLUX DISEASE
     Dosage: 150 MG BOTH
     Route: 065
     Dates: start: 199701, end: 200408
  7. RANITIDINE. [Suspect]
     Active Substance: RANITIDINE
     Dosage: 300 MG,2004?2015 AS NEEDED THEN DAILY 2X DAY
     Route: 065
     Dates: start: 200401, end: 201901
  8. RANITIDINE. [Suspect]
     Active Substance: RANITIDINE
     Indication: GASTROOESOPHAGEAL REFLUX DISEASE
     Dosage: 150 MG, 2004?2015 AS NEEDED THEN DAILY 2X DAY
     Route: 065
     Dates: start: 200401, end: 201901
  9. RANITIDINE. [Suspect]
     Active Substance: RANITIDINE
     Indication: GASTROOESOPHAGEAL REFLUX DISEASE
     Dosage: 150 MG, 2004?2015 AS NEEDED THEN DAILY 2X DAY
     Route: 065
     Dates: start: 200401, end: 201901
  10. ZANTAC [Suspect]
     Active Substance: RANITIDINE HYDROCHLORIDE
     Indication: GASTROOESOPHAGEAL REFLUX DISEASE
     Dosage: VARIED.  MY LAST SCRIPT FOR RANITIDINE WHICH I HAVE A BOTTLE SAYS TAKE 1 300 MG BY 2X DAY|PRESCRIPTI
     Route: 065
     Dates: start: 199308, end: 199901
  11. RANITIDINE CAPSULE [Suspect]
     Active Substance: RANITIDINE
     Indication: GASTROOESOPHAGEAL REFLUX DISEASE
     Dosage: 150 MG, 2004?2015 AS NEEDED THEN DAILY 2X DAY
     Route: 065
     Dates: start: 200401, end: 201901
  12. RANITIDINE. [Suspect]
     Active Substance: RANITIDINE
     Indication: GASTROOESOPHAGEAL REFLUX DISEASE
     Dosage: 150 MG, 2004?2015 AS NEEDED THEN DAILY 2X DAY
     Route: 065
     Dates: start: 200401, end: 201901
  13. RANITIDINE CAPSULE [Suspect]
     Active Substance: RANITIDINE
     Dosage: 300 MG, 2004?2015 AS NEEDED THEN DAILY 2X DAY
     Route: 065
     Dates: start: 200401, end: 201901

REACTIONS (2)
  - Cervix carcinoma [Unknown]
  - Thyroid cancer [Unknown]
